FAERS Safety Report 17680720 (Version 1)
Quarter: 2020Q2

REPORT INFORMATION
  Report Type: Spontaneous
  Country: AL (occurrence: AL)
  Receive Date: 20200417
  Receipt Date: 20200417
  Transmission Date: 20200714
  Serious: No
  Sender: FDA-Public Use
  Company Number: None

PATIENT
  Age: 41 Year
  Sex: Female

DRUGS (1)
  1. OCREVUS [Suspect]
     Active Substance: OCRELIZUMAB
     Indication: MULTIPLE SCLEROSIS
     Dosage: ?          OTHER FREQUENCY:EVERY 2 WEEKS X2;?
     Route: 041
     Dates: start: 20200312

REACTIONS (3)
  - Infusion related reaction [None]
  - Chest discomfort [None]
  - Oropharyngeal pain [None]

NARRATIVE: CASE EVENT DATE: 20200312
